FAERS Safety Report 10219993 (Version 1)
Quarter: 2014Q2

REPORT INFORMATION
  Report Type: Spontaneous
  Country: BR (occurrence: BR)
  Receive Date: 20140605
  Receipt Date: 20140605
  Transmission Date: 20141212
  Serious: Yes (Hospitalization)
  Sender: FDA-Public Use
  Company Number: BR-ASTRAZENECA-2014SE37144

PATIENT
  Age: 60 Year
  Sex: Male
  Weight: 100 kg

DRUGS (5)
  1. ATENOLOL [Suspect]
     Indication: DRESSLER^S SYNDROME
     Route: 048
     Dates: start: 2000
  2. BRILINTA [Suspect]
     Indication: CARDIOVASCULAR EVENT PROPHYLAXIS
     Route: 048
     Dates: start: 201402
  3. GLIFAGE [Suspect]
     Indication: DRESSLER^S SYNDROME
     Route: 048
     Dates: start: 2000
  4. ARADOIS [Concomitant]
     Indication: DRESSLER^S SYNDROME
     Route: 048
     Dates: start: 2000
  5. SIMVASTATIN [Concomitant]
     Indication: DRESSLER^S SYNDROME
     Route: 048
     Dates: start: 2000

REACTIONS (2)
  - Aortic occlusion [Recovering/Resolving]
  - Skin discolouration [Not Recovered/Not Resolved]
